FAERS Safety Report 5817334-6 (Version None)
Quarter: 2008Q3

REPORT INFORMATION
  Report Type: 
  Country: None (occurrence: None)
  Receive Date: 20080715
  Receipt Date: 20080630
  Transmission Date: 20090109
  Serious: Yes (Hospitalization)
  Sender: FDA-Public Use
  Company Number: DSA_32095_2008

PATIENT
  Age: 85 Year
  Sex: Male

DRUGS (5)
  1. RENIVACE (RENIVACE - ENALAPRIL MALEATE) (NOT SPECIFIED) [Suspect]
     Indication: HYPERTENSION
     Dosage: DF ORAL
     Route: 048
     Dates: start: 20080531, end: 20080610
  2. ENALAPRIL MALEATE [Concomitant]
  3. LASIX [Concomitant]
  4. HARNAL [Concomitant]
  5. VESICARE [Concomitant]

REACTIONS (1)
  - INTERSTITIAL LUNG DISEASE [None]
